FAERS Safety Report 4678748-3 (Version None)
Quarter: 2005Q2

REPORT INFORMATION
  Report Type: 
  Country: None (occurrence: None)
  Receive Date: 20050531
  Receipt Date: 20050516
  Transmission Date: 20051028
  Serious: Yes (Hospitalization)
  Sender: FDA-Public Use
  Company Number: HQWYE883123MAY05

PATIENT
  Age: 64 Year
  Sex: Male
  Weight: 104 kg

DRUGS (18)
  1. RAPAMUNE [Suspect]
     Indication: PROPHYLAXIS AGAINST TRANSPLANT REJECTION
     Dosage: 6 MG 1X PER 1 DAY,ORAL
     Route: 048
     Dates: start: 20050121
  2. RAPAMUNE [Suspect]
  3. CELLCEPT [Suspect]
     Indication: PROPHYLAXIS AGAINST TRANSPLANT REJECTION
     Dosage: 1 G X2X PER 1 DAY, ORAL
     Route: 048
  4. PREDNISONE [Suspect]
     Indication: PROPHYLAXIS AGAINST TRANSPLANT REJECTION
     Dosage: 5 MG DAILY AND TAPERING, ORAL
     Route: 048
  5. ZENAPAX [Suspect]
     Indication: PROPHYLAXIS AGAINST TRANSPLANT REJECTION
     Dosage: ORAL
     Route: 048
  6. BACTRIM [Concomitant]
  7. PROTONIX [Concomitant]
  8. MULTIVITAMINS, PLAIN (MULTIVITAMINS,PLAIN) [Concomitant]
  9. NORVASC [Concomitant]
  10. CLONIDINE [Concomitant]
  11. METOPROLOL TARTRATE [Concomitant]
  12. ZOCOR [Concomitant]
  13. LOPID [Concomitant]
  14. SYNTHROID [Concomitant]
  15. LEXAPRO [Concomitant]
  16. ACTOS [Concomitant]
  17. LANTUS [Concomitant]
  18. NOVOLOG [Concomitant]

REACTIONS (11)
  - ASTHENIA [None]
  - BODY TEMPERATURE DECREASED [None]
  - CARDIAC MURMUR [None]
  - CHILLS [None]
  - CREPITATIONS [None]
  - DYSPNOEA [None]
  - EXCORIATION [None]
  - FATIGUE [None]
  - FLANK PAIN [None]
  - OEDEMA [None]
  - PITTING OEDEMA [None]
